FAERS Safety Report 4505785-1 (Version None)
Quarter: 2005Q1

REPORT INFORMATION
  Report Type: 
  Country: None (occurrence: None)
  Receive Date: 20041025
  Receipt Date: 20031212
  Transmission Date: 20050727
  Serious: Yes (Other)
  Sender: FDA-Public Use
  Company Number: US-JNJFOC-20031202963

PATIENT
  Age: 42 Year
  Sex: Female
  Weight: 62.5964 kg

DRUGS (6)
  1. REMICADE [Suspect]
     Indication: CROHN'S DISEASE
     Dosage: 10 MG/KG INTRAVENOUS
     Route: 042
  2. LOMOTIL [Concomitant]
  3. CODEINE [Concomitant]
  4. ELAVIL [Concomitant]
  5. CALCITONIN [Concomitant]
  6. VITAMIN D (ERGOCALCERIFEROL) INJECTION [Concomitant]

REACTIONS (3)
  - CONVULSION [None]
  - DRUG INEFFECTIVE [None]
  - MOUTH ULCERATION [None]
